FAERS Safety Report 5044005-9 (Version None)
Quarter: 2006Q2

REPORT INFORMATION
  Report Type: 
  Country: None (occurrence: None)
  Receive Date: 20060601
  Receipt Date: 20060403
  Transmission Date: 20061013
  Serious: No
  Sender: FDA-Public Use
  Company Number: US200604000503

PATIENT
  Age: 16 Year
  Sex: Female

DRUGS (1)
  1. CYMBALTA [Suspect]
     Indication: MAJOR DEPRESSION
     Dosage: 40 MG, OTHER
     Dates: end: 20060201

REACTIONS (5)
  - AGITATION [None]
  - CONSTIPATION [None]
  - DISTURBANCE IN ATTENTION [None]
  - INSOMNIA [None]
  - VISION BLURRED [None]
